FAERS Safety Report 22064806 (Version 1)
Quarter: 2023Q1

REPORT INFORMATION
  Report Type: Spontaneous
  Country: US (occurrence: US)
  Receive Date: 20230306
  Receipt Date: 20230306
  Transmission Date: 20230418
  Serious: Yes (Other)
  Sender: FDA-Public Use
  Company Number: US-BRISTOL-MYERS SQUIBB COMPANY-2023-030383

PATIENT
  Age: 59 Year
  Sex: Female
  Weight: 70.76 kg

DRUGS (2)
  1. OPDIVO [Suspect]
     Active Substance: NIVOLUMAB
     Indication: Non-small cell lung cancer
     Dosage: DOSE : UNKNOWN;     FREQ : PRESCRIBED FOR EVERY 3 WEEKS BUT ONLY RECEIVED ONE INFUSION
     Dates: start: 20230206, end: 20230227
  2. YERVOY [Suspect]
     Active Substance: IPILIMUMAB
     Indication: Non-small cell lung cancer
     Dosage: DOSE : UNKNOWN;     FREQ : PRESCRIBED FOR EVERY 3 WEEKS BUT ONLY RECEIVED ONE INFUSION
     Dates: start: 20230206, end: 20230227

REACTIONS (3)
  - Metastases to neck [Unknown]
  - Off label use [Unknown]
  - Metastases to liver [Unknown]

NARRATIVE: CASE EVENT DATE: 20230227
